FAERS Safety Report 7257130-9 (Version None)
Quarter: 2011Q1

REPORT INFORMATION
  Report Type: 
  Country: None (occurrence: None)
  Receive Date: 20110129
  Receipt Date: 20100728
  Transmission Date: 20110831
  Serious: No
  Sender: FDA-Public Use
  Company Number: US-ABBOTT-10P-163-0661283-00

PATIENT
  Sex: Female
  Weight: 68.1 kg

DRUGS (2)
  1. ZYRTEC [Concomitant]
     Indication: PRODUCT USED FOR UNKNOWN INDICATION
  2. HUMIRA [Suspect]
     Indication: CROHN'S DISEASE
     Route: 058
     Dates: start: 20091001

REACTIONS (2)
  - DRUG INEFFECTIVE [None]
  - C-REACTIVE PROTEIN INCREASED [None]
